FAERS Safety Report 19264174 (Version 2)
Quarter: 2021Q2

REPORT INFORMATION
  Report Type: Report from Study
  Country: CA (occurrence: CA)
  Receive Date: 20210517
  Receipt Date: 20210522
  Transmission Date: 20210717
  Serious: Yes (Other)
  Sender: FDA-Public Use
  Company Number: CA-TAKEDA-2021TUS030643

PATIENT
  Age: 37 Year
  Sex: Male

DRUGS (3)
  1. REMICADE [Concomitant]
     Active Substance: INFLIXIMAB
     Dosage: UNK
  2. VEDOLIZUMAB [Suspect]
     Active Substance: VEDOLIZUMAB
     Dosage: 300 MILLIGRAM, Q8WEEKS
     Route: 042
  3. VEDOLIZUMAB [Suspect]
     Active Substance: VEDOLIZUMAB
     Indication: COLITIS ULCERATIVE
     Dosage: 300 MILLIGRAM
     Route: 042
     Dates: start: 20201125

REACTIONS (3)
  - Abdominal distension [Unknown]
  - Flatulence [Unknown]
  - Haematochezia [Unknown]
